FAERS Safety Report 9497635 (Version 5)
Quarter: 2013Q4

REPORT INFORMATION
  Report Type: Spontaneous
  Country: IT (occurrence: None)
  Receive Date: 20130830
  Receipt Date: 20131015
  Transmission Date: 20140711
  Serious: Yes (Hospitalization)
  Sender: FDA-Public Use
  Company Number: AUR-APL-2013-07090

PATIENT
  Age: 42 Year
  Sex: Female

DRUGS (2)
  1. LEVOFLOXACIN [Suspect]
     Indication: BRONCHITIS
     Dosage: 500 MG (500 MG, 1 IN 1 D), ORAL
     Route: 048
     Dates: start: 20130712, end: 20130714
  2. AMOXICILLIN/CLAVULANIC ACID [Concomitant]

REACTIONS (9)
  - Asthenia [None]
  - Loss of consciousness [None]
  - Disturbance in attention [None]
  - Headache [None]
  - Electroencephalogram abnormal [None]
  - Chills [None]
  - Irritability [None]
  - Deafness [None]
  - Hallucination [None]
